FAERS Safety Report 24207329 (Version 3)
Quarter: 2024Q4

REPORT INFORMATION
  Report Type: Spontaneous
  Country: US (occurrence: US)
  Receive Date: 20240813
  Receipt Date: 20241127
  Transmission Date: 20250115
  Serious: No
  Sender: SANOFI AVENTIS
  Company Number: US-SA-2024SA224614

PATIENT
  Age: 54 Year
  Sex: Male

DRUGS (1)
  1. DUPIXENT [Suspect]
     Active Substance: DUPILUMAB
     Indication: Nasal polyps
     Dosage: 300 MG, QOW
     Route: 058
     Dates: start: 202406

REACTIONS (9)
  - Paranasal sinus discomfort [Unknown]
  - Stress [Unknown]
  - Fatigue [Unknown]
  - Depressed mood [Unknown]
  - Therapeutic product effect incomplete [Unknown]
  - Allergic sinusitis [Unknown]
  - Eye allergy [Unknown]
  - Mental status changes [Unknown]
  - Condition aggravated [Unknown]

NARRATIVE: CASE EVENT DATE: 20240101
